FAERS Safety Report 14763367 (Version 2)
Quarter: 2018Q2

REPORT INFORMATION
  Report Type: Report from Study
  Country: AU (occurrence: AU)
  Receive Date: 20180416
  Receipt Date: 20180529
  Transmission Date: 20180711
  Serious: Yes (Hospitalization)
  Sender: FDA-Public Use
  Company Number: AU-MYLANLABS-2018M1024716

PATIENT
  Sex: Female

DRUGS (4)
  1. CLOPINE [Suspect]
     Active Substance: CLOZAPINE
     Indication: PRODUCT USED FOR UNKNOWN INDICATION
     Dosage: 200 MG, UNK
     Dates: start: 2018
  2. CLOZARIL [Suspect]
     Active Substance: CLOZAPINE
     Dosage: UNK
     Dates: start: 201803
  3. CLOZARIL [Suspect]
     Active Substance: CLOZAPINE
     Indication: SCHIZOPHRENIA
     Dosage: 150 MG, UNK
     Route: 048
     Dates: start: 20161104
  4. CLOPINE [Suspect]
     Active Substance: CLOZAPINE
     Dosage: 50 MG, UNK
     Dates: start: 2018

REACTIONS (1)
  - Hospitalisation [Unknown]
